FAERS Safety Report 4520031-0 (Version None)
Quarter: 2004Q4

REPORT INFORMATION
  Report Type: 
  Country: None (occurrence: None)
  Receive Date: 20041202
  Receipt Date: 20041202
  Transmission Date: 20050328
  Serious: Yes (Death)
  Sender: FDA-Public Use
  Company Number: None

PATIENT
  Age: 81 Year
  Sex: Male
  Weight: 52.1637 kg

DRUGS (2)
  1. ZOLADEX [Suspect]
     Indication: PROSTATE CANCER
     Dosage: 3.6 MG SC EVERY 4 WKS
     Route: 058
     Dates: start: 20040813
  2. CASODEX [Suspect]
     Indication: PROSTATE CANCER
     Dosage: 50 MG PO DAILY
     Route: 048
     Dates: start: 20040813, end: 20040816

REACTIONS (1)
  - PROSTATE CANCER METASTATIC [None]
